FAERS Safety Report 4688863-6 (Version None)
Quarter: 2005Q2

REPORT INFORMATION
  Report Type: 
  Country: None (occurrence: None)
  Receive Date: 20050610
  Receipt Date: 20050608
  Transmission Date: 20051028
  Serious: Yes (Death)
  Sender: FDA-Public Use
  Company Number: 05-06-1015

PATIENT
  Age: 20 Year
  Sex: Male

DRUGS (2)
  1. CLOZAPINE [Suspect]
     Indication: AUTISM
     Dosage: 600MG QD ORAL
     Route: 048
     Dates: start: 20050401, end: 20050501
  2. CLOZAPINE [Suspect]
     Indication: BIPOLAR DISORDER
     Dosage: 600MG QD ORAL
     Route: 048
     Dates: start: 20050401, end: 20050501

REACTIONS (2)
  - PNEUMONIA BACTERIAL [None]
  - STAPHYLOCOCCAL INFECTION [None]
